FAERS Safety Report 8204400-3 (Version None)
Quarter: 2012Q1

REPORT INFORMATION
  Report Type: 
  Country: None (occurrence: None)
  Receive Date: 20120313
  Receipt Date: 20120313
  Transmission Date: 20120608
  Serious: Yes (Life-Threatening)
  Sender: FDA-Public Use
  Company Number: None

PATIENT
  Age: 52 Year
  Sex: Female
  Weight: 68.9 kg

DRUGS (2)
  1. HURRICAINE SPRAY 20% [Suspect]
     Indication: ECHOCARDIOGRAM
     Dosage: 1 SECOND SPRAY TO THROAT
     Route: 049
     Dates: start: 20120203, end: 20120203
  2. HURRICAINE SPRAY 20% [Suspect]
     Indication: THERAPEUTIC PROCEDURE
     Dosage: 1 SECOND SPRAY TO THROAT
     Route: 049
     Dates: start: 20120203, end: 20120203

REACTIONS (1)
  - DRUG HYPERSENSITIVITY [None]
